FAERS Safety Report 4595334-4 (Version None)
Quarter: 2005Q1

REPORT INFORMATION
  Report Type: 
  Country: None (occurrence: None)
  Receive Date: 20050225
  Receipt Date: 20050225
  Transmission Date: 20050727
  Serious: Yes (Other)
  Sender: FDA-Public Use
  Company Number: None

PATIENT

DRUGS (1)
  1. ERYTHROMYCIN [Suspect]

REACTIONS (3)
  - APPLICATION SITE ERYTHEMA [None]
  - NEONATAL DISORDER [None]
  - OCULAR HYPERAEMIA [None]
